FAERS Safety Report 9571451 (Version 1)
Quarter: 2013Q4

REPORT INFORMATION
  Report Type: Spontaneous
  Country: BE (occurrence: BE)
  Receive Date: 20131001
  Receipt Date: 20131001
  Transmission Date: 20140711
  Serious: Yes (Death)
  Sender: FDA-Public Use
  Company Number: BE-SA-2013SA095490

PATIENT
  Age: 48 Year
  Sex: Female

DRUGS (1)
  1. CLEXANE [Suspect]
     Indication: PROPHYLAXIS
     Route: 058

REACTIONS (1)
  - Pulmonary embolism [Fatal]
